FAERS Safety Report 9997508 (Version 9)
Quarter: 2014Q3

REPORT INFORMATION
  Report Type: Report from Study
  Country: US (occurrence: US)
  Receive Date: 20140311
  Receipt Date: 20140818
  Transmission Date: 20150326
  Serious: Yes (Death, Hospitalization, Other)
  Sender: FDA-Public Use
  Company Number: US-ACTELION-A-NJ2014-95763

PATIENT
  Age: 71 Year
  Sex: Male

DRUGS (2)
  1. VENTAVIS [Suspect]
     Active Substance: ILOPROST
     Indication: PULMONARY HYPERTENSION
     Dosage: 5 MCG, 6 X/DAY
     Route: 055
     Dates: start: 2013
  2. ADCIRCA [Concomitant]
     Active Substance: TADALAFIL

REACTIONS (18)
  - Vomiting [Unknown]
  - Asthenia [Unknown]
  - Nephrolithiasis [Unknown]
  - Mental status changes [Recovering/Resolving]
  - Pyrexia [Unknown]
  - Terminal state [Unknown]
  - Memory impairment [Recovering/Resolving]
  - Dizziness [Recovering/Resolving]
  - Carcinoid tumour [Fatal]
  - Oedema peripheral [Unknown]
  - Hyperammonaemia [Recovering/Resolving]
  - Lethargy [Recovering/Resolving]
  - Nausea [Unknown]
  - Drug dose omission [Unknown]
  - Localised infection [Unknown]
  - Erythema [Unknown]
  - Right ventricular failure [Unknown]
  - Cough [Unknown]

NARRATIVE: CASE EVENT DATE: 20140625
